FAERS Safety Report 21308085 (Version 2)
Quarter: 2023Q2

REPORT INFORMATION
  Report Type: Spontaneous
  Country: US (occurrence: US)
  Receive Date: 20220908
  Receipt Date: 20230608
  Transmission Date: 20230722
  Serious: No
  Sender: FDA-Public Use
  Company Number: US-NIPPON SHINYAKU-NIP-2022-000039

PATIENT
  Sex: Male

DRUGS (1)
  1. VILTEPSO [Suspect]
     Active Substance: VILTOLARSEN
     Indication: Duchenne muscular dystrophy
     Dosage: 2100 MILLIGRAM, QWK
     Route: 042
     Dates: start: 202102

REACTIONS (1)
  - Drug hypersensitivity [Recovered/Resolved]
